FAERS Safety Report 6418310-5 (Version None)
Quarter: 2009Q4

REPORT INFORMATION
  Report Type: 
  Country: None (occurrence: None)
  Receive Date: 20091028
  Receipt Date: 20091015
  Transmission Date: 20100525
  Serious: Yes (Hospitalization, Other)
  Sender: FDA-Public Use
  Company Number: US-ELI_LILLY_AND_COMPANY-US200909002314

PATIENT
  Sex: Female
  Weight: 93.787 kg

DRUGS (1)
  1. FORTEO [Suspect]
     Indication: OSTEOPOROSIS
     Dosage: UNK, UNK
     Dates: start: 20090401, end: 20090101

REACTIONS (1)
  - OSTEOSARCOMA METASTATIC [None]
